FAERS Safety Report 8237219-8 (Version None)
Quarter: 2012Q1

REPORT INFORMATION
  Report Type: 
  Country: None (occurrence: None)
  Receive Date: 20120327
  Receipt Date: 20120316
  Transmission Date: 20120608
  Serious: Yes (Death, Other)
  Sender: FDA-Public Use
  Company Number: US-BAXTER-2012BAX000027

PATIENT
  Sex: 0

DRUGS (1)
  1. ARALAST NP [Suspect]
     Route: 065

REACTIONS (1)
  - DEATH [None]
